FAERS Safety Report 4353584-6 (Version None)
Quarter: 2004Q2

REPORT INFORMATION
  Report Type: 
  Country: None (occurrence: None)
  Receive Date: 20040505
  Receipt Date: 20040312
  Transmission Date: 20050107
  Serious: Yes (Death, Hospitalization)
  Sender: FDA-Public Use
  Company Number: BE-BRISTOL-MYERS SQUIBB COMPANY-12532008

PATIENT
  Age: 71 Year
  Sex: Male
  Weight: 70 kg

DRUGS (6)
  1. MAXIPIME [Suspect]
     Indication: FEBRILE NEUTROPENIA
     Route: 042
     Dates: start: 20040226, end: 20040301
  2. COVERSYL [Concomitant]
     Route: 048
     Dates: start: 20040131
  3. LIPITOR [Concomitant]
     Route: 048
  4. MS CONTIN [Concomitant]
     Route: 048
     Dates: start: 20040203
  5. LITICAN [Concomitant]
     Route: 048
     Dates: start: 20040203, end: 20040317
  6. ZANTAC [Concomitant]
     Route: 048
     Dates: start: 20040203, end: 20040317

REACTIONS (2)
  - LUNG ADENOCARCINOMA [None]
  - MYOCLONUS [None]
